FAERS Safety Report 8862910 (Version 1)
Quarter: 2012Q4

REPORT INFORMATION
  Report Type: 
  Country: BR (occurrence: BR)
  Receive Date: 20121026
  Receipt Date: 20121026
  Transmission Date: 20130627
  Serious: Yes (Other)
  Sender: FDA-Public Use
  Company Number: BR-PFIZER INC-2009298843

PATIENT
  Age: 42 Year
  Sex: Female
  Weight: 70 kg

DRUGS (16)
  1. LYRICA [Suspect]
     Indication: FIBROMYALGIA
     Dosage: 75 mg, 1x/day
     Route: 048
     Dates: start: 20091113
  2. LYRICA [Suspect]
     Indication: ANXIETY
     Dosage: 75 mg, UNK
     Route: 048
     Dates: start: 2011
  3. LYRICA [Suspect]
     Indication: INSOMNIA
     Dosage: 150 mg, 1x/day
     Route: 048
  4. LYRICA [Suspect]
     Indication: SLEEP DISORDER
  5. LYRICA [Suspect]
     Indication: RELAXATION THERAPY
  6. LYRICA [Suspect]
     Indication: OSTEOARTHRITIS
  7. LYRICA [Suspect]
     Indication: SPINAL PAIN
  8. SYNTHROID [Concomitant]
     Indication: HYPOTHYROIDISM
     Dosage: 1 DF, 1x/day
     Dates: start: 1995
  9. NORTRIPTYLINE HYDROCHLORIDE [Concomitant]
     Indication: DEPRESSION
     Dosage: UNK
     Dates: start: 20091113
  10. FRONTAL [Concomitant]
     Indication: ANXIETY
     Dosage: 2 unspecified if tablets or capsules stength 1 mg daily
     Dates: start: 2005
  11. PANTOPRAZOL [Concomitant]
     Indication: GASTRITIS
     Dosage: UNK
     Dates: start: 2007
  12. PANTOPRAZOL [Concomitant]
     Indication: REFLUX GASTRITIS
  13. CLIMENE [Concomitant]
     Indication: HORMONE REPLACEMENT THERAPY
     Dosage: UNK
     Dates: start: 20091110
  14. CODEINE PHOSPHATE/PARACETAMOL [Concomitant]
     Dosage: UNK
  15. SUPRELLE [Concomitant]
     Indication: HORMONE REPLACEMENT THERAPY
     Dosage: UNK
     Dates: start: 201203
  16. CRESTOR [Concomitant]
     Indication: BLOOD CHOLESTEROL INCREASED

REACTIONS (12)
  - Mental disorder [Unknown]
  - Off label use [Unknown]
  - Constipation [Unknown]
  - Somnolence [Unknown]
  - Chest discomfort [Unknown]
  - Menstrual disorder [Unknown]
  - Pain [Unknown]
  - Feeling of relaxation [Unknown]
  - Dizziness [Unknown]
  - Blood thyroid stimulating hormone abnormal [Unknown]
  - Blood oestrogen abnormal [Unknown]
  - Flatulence [Unknown]
